FAERS Safety Report 15268397 (Version 1)
Quarter: 2018Q3

REPORT INFORMATION
  Report Type: Spontaneous
  Country: US (occurrence: US)
  Receive Date: 20180725
  Receipt Date: 20180725
  Transmission Date: 20181010
  Serious: Yes (Hospitalization)
  Sender: FDA-Public Use
  Company Number: None

PATIENT
  Age: 54 Year
  Sex: Female
  Weight: 96.4 kg

DRUGS (14)
  1. NAPROXEN. [Concomitant]
     Active Substance: NAPROXEN
  2. HYDROCODONE?ACETAMINOPHEN [Concomitant]
     Active Substance: ACETAMINOPHEN\HYDROCODONE
  3. DAPTOMYCIN 500MG [Suspect]
     Active Substance: DAPTOMYCIN
     Indication: URINARY TRACT INFECTION
  4. GABAPENTIN. [Concomitant]
     Active Substance: GABAPENTIN
  5. GENTAMICIN. [Concomitant]
     Active Substance: GENTAMICIN
  6. VENLAFAXINE [Concomitant]
     Active Substance: VENLAFAXINE HYDROCHLORIDE
  7. OXYBUTYNIN. [Concomitant]
     Active Substance: OXYBUTYNIN CHLORIDE
  8. CEFTRIAXONE. [Concomitant]
     Active Substance: CEFTRIAXONE
  9. AMITRIPTYLINE [Concomitant]
     Active Substance: AMITRIPTYLINE
  10. BACLOFEN. [Concomitant]
     Active Substance: BACLOFEN
  11. DAPTOMYCIN 500MG [Suspect]
     Active Substance: DAPTOMYCIN
     Indication: SEPSIS
     Route: 042
     Dates: start: 20180719, end: 20180723
  12. COLLAGENASE SANTYL [Concomitant]
     Active Substance: COLLAGENASE CLOSTRIDIUM HISTOLYTICUM
  13. PRIMIDONE. [Concomitant]
     Active Substance: PRIMIDONE
  14. PROPRANOLOL [Concomitant]
     Active Substance: PROPRANOLOL HYDROCHLORIDE

REACTIONS (5)
  - Pyrexia [None]
  - Chromaturia [None]
  - Urticaria [None]
  - Urine output decreased [None]
  - Diarrhoea [None]

NARRATIVE: CASE EVENT DATE: 20180723
